FAERS Safety Report 14681020 (Version 1)
Quarter: 2018Q1

REPORT INFORMATION
  Report Type: Spontaneous
  Country: AU (occurrence: AU)
  Receive Date: 20180326
  Receipt Date: 20180326
  Transmission Date: 20180509
  Serious: Yes (Hospitalization)
  Sender: FDA-Public Use
  Company Number: AU-ASTRAZENECA-2018SE32843

PATIENT
  Age: 29 Year
  Sex: Male
  Weight: 78 kg

DRUGS (6)
  1. CLOPINE [Concomitant]
     Active Substance: CLOZAPINE
     Dosage: 200.0MG UNKNOWN
     Route: 048
     Dates: start: 20171218, end: 20180103
  2. DIAZEPAM. [Concomitant]
     Active Substance: DIAZEPAM
     Indication: ANXIETY
     Dosage: 2.5MG AS REQUIRED
     Route: 048
     Dates: start: 20171201
  3. ARIPIPRAZOLE. [Concomitant]
     Active Substance: ARIPIPRAZOLE
     Indication: ILL-DEFINED DISORDER
     Route: 048
     Dates: start: 20171201
  4. LURASIDONE [Concomitant]
     Active Substance: LURASIDONE
  5. SEROQUEL [Suspect]
     Active Substance: QUETIAPINE FUMARATE
     Dosage: DOSE AND FREQUENCY NOT REPORTED
     Route: 048
  6. SERTRALINE [Concomitant]
     Active Substance: SERTRALINE HYDROCHLORIDE

REACTIONS (12)
  - C-reactive protein increased [Recovered/Resolved]
  - Troponin increased [Recovered/Resolved]
  - Paranoia [Unknown]
  - Weight increased [Unknown]
  - Autonomic nervous system imbalance [Recovered/Resolved]
  - Hallucination, auditory [Unknown]
  - Pyrexia [Unknown]
  - Confusional state [Recovered/Resolved]
  - Mental impairment [Unknown]
  - White blood cell count increased [Unknown]
  - Malaise [Recovered/Resolved]
  - Neutrophil count increased [Unknown]

NARRATIVE: CASE EVENT DATE: 20180103
